FAERS Safety Report 13319122 (Version 1)
Quarter: 2017Q1

REPORT INFORMATION
  Report Type: Report from Study
  Country: TW (occurrence: TW)
  Receive Date: 20170310
  Receipt Date: 20170310
  Transmission Date: 20170428
  Serious: Yes (Death, Hospitalization)
  Sender: FDA-Public Use
  Company Number: TW-SA-2015SA185462

PATIENT
  Age: 84 Year
  Sex: Male
  Weight: 66.2 kg

DRUGS (14)
  1. VOKER FC [Concomitant]
     Dosage: 20 MG
     Route: 048
  2. CALCIUM [Concomitant]
     Active Substance: CALCIUM
     Dosage: TIDAC
     Route: 048
  3. ASPIRIN. [Suspect]
     Active Substance: ASPIRIN
     Indication: ACUTE CORONARY SYNDROME
     Route: 048
  4. FOLIC ACID. [Concomitant]
     Active Substance: FOLIC ACID
     Route: 048
  5. DUROGESIC [Concomitant]
     Active Substance: FENTANYL
  6. MORPHINE [Concomitant]
     Active Substance: MORPHINE
     Dosage: Q6H
     Route: 048
  7. ALCOS-ANAL [Concomitant]
     Route: 054
  8. LEVEMIR [Concomitant]
     Active Substance: INSULIN DETEMIR
     Dosage: DOSE:10 UNIT(S)
     Route: 058
  9. BOKEY [Concomitant]
     Dosage: 100 MG
     Route: 048
  10. EPOETIN BETA [Concomitant]
     Active Substance: ERYTHROPOIETIN
     Dosage: DOSE:2000 UNIT(S)
     Route: 058
  11. CONCOR [Concomitant]
     Active Substance: BISOPROLOL FUMARATE
     Dosage: 1.25 MG/T
     Route: 048
  12. VITAMIN B COMPLEX [Concomitant]
     Active Substance: CYANOCOBALAMIN\DEXPANTHENOL\NIACINAMIDE\PYRIDOXINE HYDROCHLORIDE\RIBOFLAVIN 5^-PHOSPHATE SODIUM\THIAMINE HYDROCHLORIDE\VITAMIN B COMPLEX
     Route: 048
  13. CLOPIDOGREL BISULFATE. [Suspect]
     Active Substance: CLOPIDOGREL BISULFATE
     Indication: ACUTE CORONARY SYNDROME
     Route: 048
     Dates: start: 20141206
  14. THROUGH [Concomitant]
     Route: 048

REACTIONS (1)
  - Lung neoplasm malignant [Fatal]

NARRATIVE: CASE EVENT DATE: 201510
